FAERS Safety Report 5700422-2 (Version None)
Quarter: 2008Q2

REPORT INFORMATION
  Report Type: 
  Country: None (occurrence: None)
  Receive Date: 20080408
  Receipt Date: 20080408
  Transmission Date: 20081010
  Serious: Yes (Hospitalization)
  Sender: FDA-Public Use
  Company Number: None

PATIENT
  Age: 52 Year
  Sex: Female
  Weight: 65.7716 kg

DRUGS (1)
  1. SEROQUEL XR [Suspect]
     Indication: SCHIZOPHRENIA
     Dosage: 400 QD PO
     Route: 048
     Dates: start: 20071210, end: 20080404

REACTIONS (2)
  - DIABETES MELLITUS [None]
  - HEPATIC ENZYME INCREASED [None]
